FAERS Safety Report 5363834-5 (Version None)
Quarter: 2007Q2

REPORT INFORMATION
  Report Type: 
  Country: None (occurrence: None)
  Receive Date: 20070620
  Receipt Date: 20070613
  Transmission Date: 20071010
  Serious: Yes (Death)
  Sender: FDA-Public Use
  Company Number: US-SANOFI-SYNTHELABO-A03200703771

PATIENT
  Sex: Male

DRUGS (13)
  1. PLAVIX [Suspect]
     Indication: STENT PLACEMENT
     Route: 048
     Dates: start: 20070101
  2. CLONAZEPAM [Concomitant]
     Dosage: UNK
     Route: 065
  3. MULTI-VITAMIN [Concomitant]
     Dosage: UNK
     Route: 065
  4. ASPIRIN [Concomitant]
     Dosage: UNK
     Route: 065
  5. CALCIUM CHLORIDE [Concomitant]
     Dosage: UNK
     Route: 065
  6. MAGNESIUM OXIDE [Concomitant]
     Dosage: UNK
     Route: 065
  7. SULFAMETH/TRIMETH [Concomitant]
     Dosage: UNK
     Route: 065
  8. PRAVASTATIN [Concomitant]
     Dosage: UNK
     Route: 065
  9. ATENOLOL [Concomitant]
     Dosage: UNK
     Route: 065
  10. RANITIDINE [Concomitant]
     Dosage: UNK
     Route: 065
  11. LISINOPRIL [Concomitant]
     Dosage: UNK
     Route: 065
  12. GENGRAF [Concomitant]
     Dosage: UNK
     Route: 065
  13. RAPAMUNE [Concomitant]
     Dosage: UNK
     Route: 065

REACTIONS (1)
  - CARDIO-RESPIRATORY ARREST [None]
